FAERS Safety Report 24028748 (Version 1)
Quarter: 2024Q2

REPORT INFORMATION
  Report Type: Spontaneous
  Country: US (occurrence: None)
  Receive Date: 20240627
  Receipt Date: 20240627
  Transmission Date: 20240716
  Serious: Yes (Other)
  Sender: FDA-Public Use
  Company Number: None

PATIENT
  Age: 25 Year
  Sex: Female
  Weight: 68.9 kg

DRUGS (1)
  1. FERRLECIT [Suspect]
     Active Substance: SODIUM FERRIC GLUCONATE COMPLEX
     Dosage: 250 MG INTRAVENOUS DRIP
     Route: 041

REACTIONS (10)
  - Dizziness [None]
  - Nausea [None]
  - Back pain [None]
  - Pruritus [None]
  - Paraesthesia [None]
  - Pruritus [None]
  - Vomiting [None]
  - Diarrhoea [None]
  - Dizziness [None]
  - Infusion related reaction [None]

NARRATIVE: CASE EVENT DATE: 20240625
